FAERS Safety Report 5811731-0 (Version None)
Quarter: 2008Q3

REPORT INFORMATION
  Report Type: 
  Country: None (occurrence: None)
  Receive Date: 20080716
  Receipt Date: 20080709
  Transmission Date: 20090109
  Serious: Yes (Other)
  Sender: FDA-Public Use
  Company Number: B0525718A

PATIENT
  Age: 60 Year
  Sex: Male

DRUGS (6)
  1. ZIDOVUDINE [Suspect]
     Indication: ANTIRETROVIRAL THERAPY
     Dosage: 300MG TWICE PER DAY
     Route: 048
     Dates: start: 20020401, end: 20020701
  2. LAMIVUDINE [Suspect]
     Indication: ANTIRETROVIRAL THERAPY
     Dosage: 300MG PER DAY
     Route: 048
     Dates: start: 20020401
  3. ABACAVIR [Suspect]
     Indication: ANTIRETROVIRAL THERAPY
     Dosage: 600MG PER DAY
     Route: 048
     Dates: start: 20020701
  4. EFAVIRENZ [Suspect]
     Indication: ANTIRETROVIRAL THERAPY
     Dosage: 600MG PER DAY
     Route: 048
     Dates: start: 20020401, end: 20020701
  5. ENTECAVIR [Suspect]
     Indication: ANTIRETROVIRAL THERAPY
     Dosage: .5MG PER DAY
     Route: 065
     Dates: start: 20061001
  6. SANILVUDINE [Suspect]
     Indication: ANTIRETROVIRAL THERAPY
     Dosage: 600MG PER DAY
     Route: 048
     Dates: start: 20020701, end: 20060801

REACTIONS (6)
  - ANAEMIA [None]
  - DIZZINESS [None]
  - HEPATITIS B [None]
  - HEPATITIS B DNA INCREASED [None]
  - PATHOGEN RESISTANCE [None]
  - VIRAL HEPATITIS CARRIER [None]
